FAERS Safety Report 24578922 (Version 1)
Quarter: 2024Q4

REPORT INFORMATION
  Report Type: Spontaneous
  Country: US (occurrence: US)
  Receive Date: 20241105
  Receipt Date: 20241105
  Transmission Date: 20250115
  Serious: Yes (Other)
  Sender: NOVARTIS
  Company Number: US-002147023-NVSC2024US209729

PATIENT

DRUGS (1)
  1. COSENTYX [Suspect]
     Active Substance: SECUKINUMAB
     Indication: Hidradenitis
     Dosage: UNK
     Route: 065
     Dates: start: 202408

REACTIONS (6)
  - Hidradenitis [Unknown]
  - Condition aggravated [Unknown]
  - Wound [Unknown]
  - Wound secretion [Unknown]
  - Thermal burn [Unknown]
  - Wound complication [Unknown]
